FAERS Safety Report 9381328 (Version 1)
Quarter: 2013Q3

REPORT INFORMATION
  Report Type: Spontaneous
  Country: US (occurrence: US)
  Receive Date: 20130703
  Receipt Date: 20130703
  Transmission Date: 20140515
  Serious: Yes (Hospitalization, Other)
  Sender: FDA-Public Use
  Company Number: US-ROXANE LABORATORIES, INC.-2013-RO-01064RO

PATIENT
  Age: 24 Year
  Sex: Female

DRUGS (4)
  1. DIAZEPAM [Suspect]
  2. AMITRIPTYLINE [Suspect]
  3. OXYCODONE [Suspect]
  4. MIRTAZAPINE [Suspect]

REACTIONS (4)
  - Hypoxia [Recovered/Resolved]
  - Respiratory failure [Recovered/Resolved]
  - Pneumonia aspiration [Recovered/Resolved]
  - Coma blister [Recovered/Resolved]
